FAERS Safety Report 9271289 (Version 2)
Quarter: 2013Q3

REPORT INFORMATION
  Report Type: Spontaneous
  Country: DE (occurrence: DE)
  Receive Date: 20130506
  Receipt Date: 20130814
  Transmission Date: 20140515
  Serious: Yes (Other)
  Sender: FDA-Public Use
  Company Number: DE-JNJFOC-20130500256

PATIENT
  Age: 81 Year
  Sex: Male
  Weight: 180 kg

DRUGS (12)
  1. XARELTO [Suspect]
     Indication: ATRIAL FIBRILLATION
     Route: 048
     Dates: start: 20130402, end: 20130410
  2. XARELTO [Suspect]
     Indication: CEREBROVASCULAR ACCIDENT PROPHYLAXIS
     Route: 048
     Dates: start: 20130402, end: 20130410
  3. ENALAPRIL [Concomitant]
     Indication: HYPERTENSION
     Route: 065
  4. FOLGAMMA [Concomitant]
     Route: 065
  5. CALCIUM [Concomitant]
     Route: 065
  6. NEUROTRAT S [Concomitant]
     Route: 065
  7. NITROLINGUAL [Concomitant]
     Route: 065
  8. NOVAMINSULFON [Concomitant]
     Route: 065
  9. VITAMIN B12 [Concomitant]
     Dosage: DOSE: 1000 UG/L
     Route: 058
  10. BISOPROLOL [Concomitant]
     Indication: HYPERTENSION
     Route: 065
  11. HCT [Concomitant]
     Route: 065
  12. ASS [Concomitant]
     Route: 065

REACTIONS (1)
  - Hypersensitivity vasculitis [Recovered/Resolved]
